FAERS Safety Report 5535153-5 (Version None)
Quarter: 2007Q4

REPORT INFORMATION
  Report Type: 
  Country: None (occurrence: None)
  Receive Date: 20071206
  Receipt Date: 20071203
  Transmission Date: 20080405
  Serious: Yes (Hospitalization)
  Sender: FDA-Public Use
  Company Number: PHRM2007FR02723

PATIENT
  Age: 68 Year
  Sex: Male

DRUGS (2)
  1. ZOMETA [Suspect]
     Route: 042
     Dates: end: 20070615
  2. ZITHROMAX [Concomitant]
     Dates: start: 20060313

REACTIONS (5)
  - BONE DISORDER [None]
  - DENTAL PROSTHESIS PLACEMENT [None]
  - OSTEOLYSIS [None]
  - OSTEONECROSIS [None]
  - SURGERY [None]
